FAERS Safety Report 8146832-8 (Version None)
Quarter: 2012Q1

REPORT INFORMATION
  Report Type: 
  Country: None (occurrence: None)
  Receive Date: 20120217
  Receipt Date: 20120209
  Transmission Date: 20120608
  Serious: Yes (Hospitalization, Other)
  Sender: FDA-Public Use
  Company Number: US-ABBOTT-12P-163-0903142-00

PATIENT
  Sex: Male
  Weight: 85.806 kg

DRUGS (1)
  1. HUMIRA [Suspect]
     Indication: RHEUMATOID ARTHRITIS
     Route: 058
     Dates: start: 20090101, end: 20120201

REACTIONS (7)
  - PAIN [None]
  - C-REACTIVE PROTEIN INCREASED [None]
  - METASTASES TO BONE [None]
  - JOINT EFFUSION [None]
  - WHITE BLOOD CELL COUNT INCREASED [None]
  - PROSTATE CANCER [None]
  - PYREXIA [None]
